FAERS Safety Report 23285171 (Version 1)
Quarter: 2023Q4

REPORT INFORMATION
  Report Type: Spontaneous
  Country: US (occurrence: None)
  Receive Date: 20231211
  Receipt Date: 20231211
  Transmission Date: 20240109
  Serious: Yes (Other)
  Sender: FDA-Public Use
  Company Number: 2023A276317

PATIENT

DRUGS (2)
  1. FASLODEX [Suspect]
     Active Substance: FULVESTRANT
     Route: 030
  2. IBRANCE [Suspect]
     Active Substance: PALBOCICLIB
     Dosage: 100.0MG UNKNOWN
     Route: 048

REACTIONS (3)
  - Faeces discoloured [Unknown]
  - Epistaxis [Unknown]
  - White blood cell count decreased [Unknown]
